FAERS Safety Report 14029748 (Version 6)
Quarter: 2020Q1

REPORT INFORMATION
  Report Type: Spontaneous
  Country: US (occurrence: US)
  Receive Date: 20170930
  Receipt Date: 20200227
  Transmission Date: 20200409
  Serious: Yes (Hospitalization, Other)
  Sender: FDA-Public Use
  Company Number: US-SA-2017SA132496

PATIENT
  Age: 45 Year
  Sex: Female

DRUGS (2)
  1. AUBAGIO [Suspect]
     Active Substance: TERIFLUNOMIDE
     Indication: MULTIPLE SCLEROSIS
     Dosage: 14 MG,QD
     Route: 048
     Dates: start: 20170526
  2. AUBAGIO [Suspect]
     Active Substance: TERIFLUNOMIDE
     Dosage: 14 MG,QD
     Route: 048

REACTIONS (6)
  - Staphylococcal infection [Unknown]
  - Skin disorder [Unknown]
  - Menstrual disorder [Unknown]
  - Weight increased [Unknown]
  - Product dose omission [Unknown]
  - Cellulitis [Unknown]

NARRATIVE: CASE EVENT DATE: 20190828
